FAERS Safety Report 5526561-7 (Version None)
Quarter: 2007Q4

REPORT INFORMATION
  Report Type: 
  Country: None (occurrence: None)
  Receive Date: 20071127
  Receipt Date: 20071115
  Transmission Date: 20080405
  Serious: Yes (Other)
  Sender: FDA-Public Use
  Company Number: DE-JNJFOC-20071106085

PATIENT
  Age: 68 Year
  Sex: Female

DRUGS (4)
  1. INFLIXIMAB [Suspect]
     Dosage: 4TH INFUSION, DATE UNSPECIFIED
     Route: 042
  2. INFLIXIMAB [Suspect]
     Indication: DRUG USE FOR UNKNOWN INDICATION
     Dosage: INFUSIONS 1-3, DATES UNSPECIFIED
     Route: 042
  3. GLUCOCORTICOSTEROIDS [Concomitant]
  4. DAPSON [Concomitant]

REACTIONS (1)
  - LEUKOCYTOCLASTIC VASCULITIS [None]
